FAERS Safety Report 4712154-8 (Version None)
Quarter: 2005Q3

REPORT INFORMATION
  Report Type: 
  Country: None (occurrence: None)
  Receive Date: 20050712
  Receipt Date: 20050401
  Transmission Date: 20060218
  Serious: Yes (Death)
  Sender: FDA-Public Use
  Company Number: JP-ROCHE-401198

PATIENT
  Age: 87 Year
  Sex: Female

DRUGS (6)
  1. TAMIFLU [Suspect]
     Route: 050
     Dates: start: 20050323, end: 20050327
  2. CALONAL [Concomitant]
     Indication: DRUG USE FOR UNKNOWN INDICATION
     Route: 050
     Dates: start: 20050323, end: 20050327
  3. ALSAZULENE [Concomitant]
     Indication: DRUG USE FOR UNKNOWN INDICATION
     Route: 050
     Dates: start: 20050323, end: 20050327
  4. NORVASC [Concomitant]
     Dosage: TEMPORARILY STOPPED  ON 31 OCTOBER 2004 AND RESTARTED ON 12 NOVEMBER 2004.
     Route: 048
  5. FRANDOL [Concomitant]
     Route: 062
     Dates: start: 20041129
  6. PENTCILLIN [Concomitant]
     Route: 042
     Dates: start: 20050323, end: 20050331

REACTIONS (1)
  - DISSEMINATED INTRAVASCULAR COAGULATION [None]
